FAERS Safety Report 21208995 (Version 2)
Quarter: 2022Q3

REPORT INFORMATION
  Report Type: Spontaneous
  Country: US (occurrence: US)
  Receive Date: 20220812
  Receipt Date: 20220822
  Transmission Date: 20221027
  Serious: Yes (Other)
  Sender: FDA-Public Use
  Company Number: US-BAYER-2022A109722

PATIENT
  Age: 17 Year
  Sex: Male

DRUGS (3)
  1. JIVI [Suspect]
     Active Substance: DAMOCTOCOG ALFA PEGOL
     Dosage: 2136 IU, UNK
  2. JIVI [Suspect]
     Active Substance: DAMOCTOCOG ALFA PEGOL
     Dosage: APPROXIMATELY 9 INFUSIONS USED FOR WISDOM TEETH REMOVAL
     Route: 042
     Dates: start: 202208, end: 202208
  3. JIVI [Suspect]
     Active Substance: DAMOCTOCOG ALFA PEGOL
     Dosage: 4272 IU Q 5 DAYS AND PRN
     Route: 042

REACTIONS (1)
  - Wisdom teeth removal [None]

NARRATIVE: CASE EVENT DATE: 20220804
